FAERS Safety Report 9965446 (Version 1)
Quarter: 2014Q1

REPORT INFORMATION
  Report Type: Report from Study
  Country: US (occurrence: US)
  Receive Date: 20140305
  Receipt Date: 20140305
  Transmission Date: 20141002
  Serious: No
  Sender: FDA-Public Use
  Company Number: US-ABBVIE-13P-163-1126508-00

PATIENT
  Age: 25 Year
  Sex: Male

DRUGS (7)
  1. HUMIRA [Suspect]
     Indication: COLITIS ULCERATIVE
     Dates: start: 20130628
  2. HUMIRA [Suspect]
  3. COLAZAL [Concomitant]
     Indication: COLITIS
  4. IRON [Concomitant]
     Indication: MINERAL SUPPLEMENTATION
  5. 6 MP [Concomitant]
     Indication: COLITIS
  6. PREDNISONE [Concomitant]
     Indication: COLITIS
     Dosage: TAPERING DOWN 5MG WEEKLY
  7. PREDNISONE [Concomitant]
     Dosage: 5MG WEEKLY

REACTIONS (1)
  - Drug ineffective [Not Recovered/Not Resolved]
